FAERS Safety Report 11441846 (Version 1)
Quarter: 2015Q3

REPORT INFORMATION
  Report Type: Spontaneous
  Country: CH (occurrence: CH)
  Receive Date: 20150901
  Receipt Date: 20150901
  Transmission Date: 20151125
  Serious: Yes (Hospitalization, Other)
  Sender: FDA-Public Use
  Company Number: CH-PFIZER INC-2015284715

PATIENT
  Age: 17 Year
  Sex: Female
  Weight: 56 kg

DRUGS (6)
  1. DEAFTOL AVEC LIDOCAINE [Concomitant]
     Route: 048
     Dates: start: 20150604, end: 20150625
  2. DAFALGAN [Concomitant]
     Active Substance: ACETAMINOPHEN
     Indication: INFLUENZA LIKE ILLNESS
     Dosage: 500 MG, UNK
     Route: 048
     Dates: start: 20150604, end: 20150702
  3. SOLMUCOL [Concomitant]
     Indication: INFLUENZA LIKE ILLNESS
     Route: 048
     Dates: start: 20150604, end: 20150625
  4. ZITHROMAX [Suspect]
     Active Substance: AZITHROMYCIN DIHYDRATE
     Indication: INFLUENZA LIKE ILLNESS
     Dosage: 500 MG, 1X/DAY
     Route: 048
     Dates: start: 20150618, end: 20150620
  5. AVAMYS [Concomitant]
     Active Substance: FLUTICASONE FUROATE
     Indication: INFLUENZA LIKE ILLNESS
     Route: 045
     Dates: start: 20150604, end: 20150625
  6. MEFENAMIC-ACID [Suspect]
     Active Substance: MEFENAMIC ACID
     Indication: INFLUENZA LIKE ILLNESS
     Dosage: 500 MG, 3X/DAY
     Route: 048
     Dates: start: 20150604, end: 20150625

REACTIONS (3)
  - Agranulocytosis [Recovered/Resolved]
  - Tonsillitis bacterial [Recovered/Resolved]
  - Febrile neutropenia [Recovered/Resolved]

NARRATIVE: CASE EVENT DATE: 20150625
